FAERS Safety Report 5036762-2 (Version None)
Quarter: 2006Q2

REPORT INFORMATION
  Report Type: 
  Country: None (occurrence: None)
  Receive Date: 20060601
  Receipt Date: 20060327
  Transmission Date: 20061013
  Serious: No
  Sender: FDA-Public Use
  Company Number: USA0510111273

PATIENT
  Age: 62 Year
  Sex: Male

DRUGS (8)
  1. CYMBALTA [Suspect]
     Indication: DEPRESSION
     Dosage: 20 MG, 2/D
     Dates: start: 20050801
  2. INSULIN [Concomitant]
  3. AVANDIA [Concomitant]
  4. SYNTHROID [Concomitant]
  5. PREVACID [Concomitant]
  6. LISINOPRIL [Concomitant]
  7. ASPIRIN [Concomitant]
  8. REMERON [Concomitant]

REACTIONS (8)
  - DYSPNOEA [None]
  - ERUCTATION [None]
  - FATIGUE [None]
  - INSOMNIA [None]
  - IRRITABILITY [None]
  - PRURITUS [None]
  - RESPIRATORY RATE INCREASED [None]
  - SOMNOLENCE [None]
